FAERS Safety Report 5810094-4 (Version None)
Quarter: 2008Q3

REPORT INFORMATION
  Report Type: 
  Country: None (occurrence: None)
  Receive Date: 20080715
  Receipt Date: 20080701
  Transmission Date: 20090109
  Serious: Yes (Hospitalization)
  Sender: FDA-Public Use
  Company Number: US-ELI_LILLY_AND_COMPANY-US200804006560

PATIENT
  Sex: Male

DRUGS (4)
  1. FORTEO [Suspect]
     Indication: OSTEOPOROSIS
     Dosage: UNK, UNK
     Dates: start: 20070901, end: 20071001
  2. DILTIAZEM HCL [Concomitant]
  3. PREDNISONE TAB [Concomitant]
  4. PRILOSEC [Concomitant]

REACTIONS (2)
  - DYSPNOEA [None]
  - HYPOXIA [None]
